FAERS Safety Report 6003560-2 (Version None)
Quarter: 2008Q4

REPORT INFORMATION
  Report Type: 
  Country: None (occurrence: None)
  Receive Date: 20081216
  Receipt Date: 20081208
  Transmission Date: 20090506
  Serious: Yes (Hospitalization, Other)
  Sender: FDA-Public Use
  Company Number: US-TEVA-182309USA

PATIENT
  Age: 53 Year
  Sex: Female

DRUGS (4)
  1. CISPLATIN [Suspect]
     Indication: METASTASES TO LIVER
  2. DOXORUBICIN HCL [Suspect]
     Indication: METASTASES TO LIVER
  3. MITOMYCIN [Suspect]
     Indication: METASTASES TO LIVER
  4. IODIXANOL [Suspect]
     Indication: METASTASES TO LIVER

REACTIONS (3)
  - ENCEPHALOPATHY [None]
  - PNEUMATOSIS INTESTINALIS [None]
  - PULMONARY HYPERTENSION [None]
